FAERS Safety Report 10410063 (Version 1)
Quarter: 2014Q3

REPORT INFORMATION
  Report Type: Spontaneous
  Country: US (occurrence: US)
  Receive Date: 20140826
  Receipt Date: 20140826
  Transmission Date: 20150326
  Serious: No
  Sender: FDA-Public Use
  Company Number: US-PFIZER INC-2014233627

PATIENT
  Sex: Female

DRUGS (1)
  1. AVINZA [Suspect]
     Active Substance: MORPHINE SULFATE
     Dosage: UNK
     Dates: start: 2004

REACTIONS (1)
  - Pain [Unknown]
